FAERS Safety Report 7828512-9 (Version None)
Quarter: 2011Q4

REPORT INFORMATION
  Report Type: 
  Country: None (occurrence: None)
  Receive Date: 20111020
  Receipt Date: 20111020
  Transmission Date: 20120403
  Serious: Yes (Life-Threatening)
  Sender: FDA-Public Use
  Company Number: None

PATIENT
  Age: 1 Month
  Sex: Female
  Weight: 3.1751 kg

DRUGS (3)
  1. PYRIMETHAMINE TAB [Suspect]
     Indication: CONGENITAL TOXOPLASMOSIS
     Dosage: 1MG/KG
     Route: 048
     Dates: start: 20110101, end: 20111019
  2. SULFADIAZINE [Concomitant]
     Indication: CONGENITAL TOXOPLASMOSIS
     Dosage: 50MG/KG BID
     Route: 048
  3. LEUCOVORIN CALCIUM [Suspect]
     Dosage: 10MG

REACTIONS (2)
  - PRODUCT QUALITY ISSUE [None]
  - NEUTROPENIA [None]
